FAERS Safety Report 16180917 (Version 10)
Quarter: 2024Q1

REPORT INFORMATION
  Report Type: Report from Study
  Country: US (occurrence: US)
  Receive Date: 20190410
  Receipt Date: 20240212
  Transmission Date: 20240409
  Serious: Yes (Hospitalization, Other)
  Sender: FDA-Public Use
  Company Number: US-TAKEDA-2019TUS020674

PATIENT
  Age: 77 Year
  Sex: Female
  Weight: 75.193 kg

DRUGS (6)
  1. IXAZOMIB [Suspect]
     Active Substance: IXAZOMIB
     Indication: Plasma cell myeloma
     Dosage: 4 MILLIGRAM
     Route: 048
     Dates: start: 20190307
  2. IXAZOMIB [Suspect]
     Active Substance: IXAZOMIB
     Indication: Breast cancer metastatic
     Dosage: 4 MILLIGRAM
     Route: 048
  3. IXAZOMIB [Suspect]
     Active Substance: IXAZOMIB
     Dosage: 4 MILLIGRAM
     Route: 048
  4. REVLIMID [Suspect]
     Active Substance: LENALIDOMIDE
     Indication: Product used for unknown indication
     Dosage: UNK
     Route: 065
  5. DARZALEX [Suspect]
     Active Substance: DARATUMUMAB
     Indication: Product used for unknown indication
     Dosage: UNK
     Route: 065
  6. DEXAMETHASONE [Concomitant]
     Active Substance: DEXAMETHASONE
     Dosage: UNK
     Route: 065

REACTIONS (26)
  - Thrombosis [Unknown]
  - COVID-19 [Unknown]
  - Red blood cell count decreased [Unknown]
  - Haemoglobin decreased [Unknown]
  - Renal failure [Unknown]
  - Blood immunoglobulin M increased [Unknown]
  - Back injury [Unknown]
  - Insomnia [Unknown]
  - Pneumonia [Unknown]
  - Constipation [Unknown]
  - Neuropathy peripheral [Unknown]
  - Diarrhoea [Unknown]
  - Headache [Unknown]
  - Fatigue [Unknown]
  - Cystitis [Unknown]
  - Dizziness [Unknown]
  - Inner ear disorder [Unknown]
  - White blood cell count decreased [Unknown]
  - Dyspepsia [Unknown]
  - Eye pain [Unknown]
  - Arthritis [Unknown]
  - Urinary tract infection [Unknown]
  - Nausea [Unknown]
  - Vomiting [Unknown]
  - Product dose omission issue [Unknown]
  - Off label use [Unknown]

NARRATIVE: CASE EVENT DATE: 20220301
